FAERS Safety Report 6924383-3 (Version None)
Quarter: 2010Q3

REPORT INFORMATION
  Report Type: 
  Country: None (occurrence: None)
  Receive Date: 20100727
  Receipt Date: 20100706
  Transmission Date: 20110219
  Serious: Yes (Hospitalization)
  Sender: FDA-Public Use
  Company Number: OMX-2010-00049

PATIENT

DRUGS (1)
  1. EVICEL [Suspect]
     Indication: PTERYGIUM

REACTIONS (2)
  - GRAFT COMPLICATION [None]
  - OFF LABEL USE [None]
